FAERS Safety Report 21546580 (Version 3)
Quarter: 2023Q2

REPORT INFORMATION
  Report Type: Report from Study
  Country: US (occurrence: US)
  Receive Date: 20221103
  Receipt Date: 20230405
  Transmission Date: 20230722
  Serious: No
  Sender: FDA-Public Use
  Company Number: US-ABBVIE-4151482

PATIENT
  Age: 68 Year
  Sex: Female

DRUGS (1)
  1. HUMIRA [Suspect]
     Active Substance: ADALIMUMAB
     Indication: Rheumatoid arthritis
     Dosage: CITRATE FREE??FORM STRENGTH 40 MILLIGRAM
     Route: 058

REACTIONS (6)
  - Amnesia [Not Recovered/Not Resolved]
  - Fall [Recovering/Resolving]
  - Memory impairment [Recovering/Resolving]
  - COVID-19 [Unknown]
  - Arthralgia [Recovering/Resolving]
  - Swelling [Recovering/Resolving]

NARRATIVE: CASE EVENT DATE: 20221110
